FAERS Safety Report 4968264-3 (Version None)
Quarter: 2006Q1

REPORT INFORMATION
  Report Type: 
  Country: None (occurrence: None)
  Receive Date: 20060201
  Receipt Date: 20051228
  Transmission Date: 20060701
  Serious: No
  Sender: FDA-Public Use
  Company Number: 2005PV006333

PATIENT
  Age: 64 Year
  Sex: Female
  Weight: 167.8309 kg

DRUGS (4)
  1. BYETTA [Suspect]
     Indication: DIABETES MELLITUS NON-INSULIN-DEPENDENT
     Dosage: SEE IMAGE
     Route: 058
     Dates: start: 20051207, end: 20051208
  2. BYETTA [Suspect]
     Indication: DIABETES MELLITUS NON-INSULIN-DEPENDENT
     Dosage: SEE IMAGE
     Route: 058
     Dates: start: 20051228
  3. ISOPHANE INSULIN [Concomitant]
  4. REGULAR INSULIN [Concomitant]

REACTIONS (3)
  - ASTHENIA [None]
  - DIZZINESS [None]
  - RETCHING [None]
